FAERS Safety Report 15580242 (Version 2)
Quarter: 2019Q1

REPORT INFORMATION
  Report Type: Spontaneous
  Country: US (occurrence: US)
  Receive Date: 20181102
  Receipt Date: 20190125
  Transmission Date: 20190417
  Serious: Yes (Hospitalization)
  Sender: FDA-Public Use
  Company Number: US-JNJFOC-20181029332

PATIENT
  Age: 55 Year
  Sex: Female

DRUGS (5)
  1. IBUPROFEN. [Suspect]
     Active Substance: IBUPROFEN
     Route: 065
  2. XARELTO [Suspect]
     Active Substance: RIVAROXABAN
     Indication: THROMBOSIS
     Route: 048
     Dates: start: 20161019, end: 20161023
  3. IBUPROFEN. [Suspect]
     Active Substance: IBUPROFEN
     Indication: HEADACHE
     Route: 065
  4. XARELTO [Suspect]
     Active Substance: RIVAROXABAN
     Indication: THROMBOSIS PROPHYLAXIS
     Route: 048
     Dates: start: 20161019, end: 20161023
  5. XARELTO [Suspect]
     Active Substance: RIVAROXABAN
     Indication: THROMBOSIS PROPHYLAXIS
     Route: 048
     Dates: start: 20161019, end: 20161023

REACTIONS (1)
  - Upper gastrointestinal haemorrhage [Recovering/Resolving]

NARRATIVE: CASE EVENT DATE: 20161021
